FAERS Safety Report 8962600 (Version 3)
Quarter: 2013Q1

REPORT INFORMATION
  Report Type: Spontaneous
  Country: JP (occurrence: JP)
  Receive Date: 20121214
  Receipt Date: 20130204
  Transmission Date: 20140127
  Serious: Yes (Hospitalization)
  Sender: FDA-Public Use
  Company Number: JP-NOVOPROD-366456

PATIENT
  Sex: Male
  Weight: 1.72 kg

DRUGS (6)
  1. NOVOLIN N [Suspect]
     Indication: DIABETES MELLITUS
     Dosage: UNK
     Route: 064
     Dates: start: 20100715, end: 20101108
  2. HUMALOG [Suspect]
     Route: 064
     Dates: start: 20100715, end: 20101108
  3. FERROMIA                           /00023520/ [Concomitant]
     Route: 064
     Dates: start: 20100715, end: 20101108
  4. FOLIAMIN [Concomitant]
     Route: 064
     Dates: start: 20100715, end: 20101108
  5. UTEMERIN [Concomitant]
     Route: 064
     Dates: start: 20100712, end: 20101108
  6. ALFAROL [Concomitant]

REACTIONS (5)
  - Low birth weight baby [Unknown]
  - Anaemia neonatal [Recovering/Resolving]
  - Rickets [Recovering/Resolving]
  - Premature baby [Unknown]
  - Foetal exposure during pregnancy [Unknown]
